APPROVED DRUG PRODUCT: OXCARBAZEPINE
Active Ingredient: OXCARBAZEPINE
Strength: 300MG/5ML
Dosage Form/Route: SUSPENSION;ORAL
Application: A078734 | Product #001 | TE Code: AB
Applicant: SUN PHARMACEUTICAL INDUSTRIES LTD
Approved: Jun 26, 2009 | RLD: No | RS: No | Type: RX